FAERS Safety Report 4733871-X (Version None)
Quarter: 2005Q3

REPORT INFORMATION
  Report Type: 
  Country: None (occurrence: None)
  Receive Date: 20050729
  Receipt Date: 20050722
  Transmission Date: 20060218
  Serious: Yes (Hospitalization)
  Sender: FDA-Public Use
  Company Number: 200413024GDS

PATIENT
  Age: 16 Year
  Sex: Male
  Weight: 22 kg

DRUGS (10)
  1. CIPROFLOXACIN [Suspect]
     Indication: MENINGITIS
     Dosage: SEE IMAGE
     Route: 042
     Dates: start: 20051026, end: 20051027
  2. CIPROFLOXACIN [Suspect]
     Indication: PSEUDOMONAS INFECTION
     Dosage: SEE IMAGE
     Route: 042
     Dates: start: 20051026, end: 20051027
  3. CIPROFLOXACIN [Suspect]
     Indication: URINARY TRACT INFECTION
     Dosage: SEE IMAGE
     Route: 042
     Dates: start: 20051026, end: 20051027
  4. CIPROFLOXACIN [Suspect]
     Indication: MENINGITIS
     Dosage: SEE IMAGE
     Route: 042
     Dates: start: 20051027, end: 20051028
  5. CIPROFLOXACIN [Suspect]
     Indication: PSEUDOMONAS INFECTION
     Dosage: SEE IMAGE
     Route: 042
     Dates: start: 20051027, end: 20051028
  6. CIPROFLOXACIN [Suspect]
     Indication: URINARY TRACT INFECTION
     Dosage: SEE IMAGE
     Route: 042
     Dates: start: 20051027, end: 20051028
  7. CIPROFLOXACIN [Suspect]
     Indication: PSEUDOMONAS INFECTION
     Dosage: 500 MG, TOTAL DAILY, ORAL
     Route: 048
     Dates: start: 20041022, end: 20041026
  8. CIPROFLOXACIN [Suspect]
     Indication: URINARY TRACT INFECTION
     Dosage: 500 MG, TOTAL DAILY, ORAL
     Route: 048
     Dates: start: 20041022, end: 20041026
  9. CEFEPIME HYDROCHLORIDE [Concomitant]
  10. VALPROIC ACID [Concomitant]

REACTIONS (1)
  - STATUS EPILEPTICUS [None]
